FAERS Safety Report 9199900 (Version 1)
Quarter: 2013Q1

REPORT INFORMATION
  Report Type: Spontaneous
  Country: FR (occurrence: FR)
  Receive Date: 20130329
  Receipt Date: 20130329
  Transmission Date: 20140127
  Serious: Yes (Hospitalization)
  Sender: FDA-Public Use
  Company Number: FR-JNJFOC-20130313501

PATIENT
  Sex: Male

DRUGS (2)
  1. XEPLION [Suspect]
     Indication: SCHIZOPHRENIA
     Dosage: DAY 1
     Route: 030
     Dates: start: 20130305
  2. XEPLION [Suspect]
     Indication: SCHIZOPHRENIA
     Dosage: ON DAY 8
     Route: 030
     Dates: start: 20130313

REACTIONS (1)
  - Suicidal ideation [Recovered/Resolved]
